FAERS Safety Report 20582177 (Version 1)
Quarter: 2022Q1

REPORT INFORMATION
  Report Type: Spontaneous
  Country: US (occurrence: None)
  Receive Date: 20220310
  Receipt Date: 20220310
  Transmission Date: 20220424
  Serious: No
  Sender: FDA-Public Use
  Company Number: None

PATIENT
  Sex: Female
  Weight: 74.93 kg

DRUGS (14)
  1. FULVESTRANT [Suspect]
     Active Substance: FULVESTRANT
     Indication: Breast cancer
     Dosage: OTHER FREQUENCY : ONCE PER MONTH;?
     Route: 030
  2. PIQRAY [Suspect]
     Active Substance: ALPELISIB
     Indication: Breast cancer
     Dosage: FREQUENCY : DAILY;?
     Route: 048
  3. ANASTROZOLE [Concomitant]
     Active Substance: ANASTROZOLE
  4. RIVASTIGMINE [Concomitant]
     Active Substance: RIVASTIGMINE
  5. ASPIRIN [Concomitant]
     Active Substance: ASPIRIN
  6. OMEPRAZOLE [Concomitant]
     Active Substance: OMEPRAZOLE
  7. ACETAMINOPHEN\OXYCODONE HYDROCHLORIDE [Concomitant]
     Active Substance: ACETAMINOPHEN\OXYCODONE HYDROCHLORIDE
  8. DEXAMETHASONE [Concomitant]
     Active Substance: DEXAMETHASONE
  9. OXYCONTIN [Concomitant]
     Active Substance: OXYCODONE HYDROCHLORIDE
  10. CALCIUM\VITAMIN D [Concomitant]
     Active Substance: CALCIUM\VITAMIN D
  11. IRON [Concomitant]
     Active Substance: IRON
  12. FOLIC ACID [Concomitant]
     Active Substance: FOLIC ACID
  13. VITAMIN B12 [Concomitant]
     Active Substance: CYANOCOBALAMIN
  14. STOOL SOFTENER (DOCUSATE) [Concomitant]
     Active Substance: DOCUSATE

REACTIONS (1)
  - Hospice care [None]
